FAERS Safety Report 9314166 (Version 1)
Quarter: 2013Q2

REPORT INFORMATION
  Report Type: Spontaneous
  Country: IT (occurrence: IT)
  Receive Date: 20130529
  Receipt Date: 20130529
  Transmission Date: 20140414
  Serious: Yes (Other)
  Sender: FDA-Public Use
  Company Number: IT-JNJFOC-20130513556

PATIENT
  Age: 20 Year
  Sex: Female
  Weight: 70 kg

DRUGS (1)
  1. TOPAMAX [Suspect]
     Indication: SELF INJURIOUS BEHAVIOUR
     Route: 048
     Dates: start: 20130520, end: 20130520

REACTIONS (2)
  - Intentional overdose [Unknown]
  - Self injurious behaviour [Unknown]
